FAERS Safety Report 4521139-6 (Version None)
Quarter: 2004Q4

REPORT INFORMATION
  Report Type: 
  Country: None (occurrence: None)
  Receive Date: 20041203
  Receipt Date: 20041118
  Transmission Date: 20050328
  Serious: Yes (Hospitalization)
  Sender: FDA-Public Use
  Company Number: 210741

PATIENT
  Age: 55 Year
  Sex: Female
  Weight: 46 kg

DRUGS (1)
  1. HERCEPTIN [Suspect]
     Indication: BREAST CANCER
     Dosage: 8 MG/KG, SINGLE; INTRAVENOUS (SEE IMAGE)
     Route: 042
     Dates: start: 20040915, end: 20041006

REACTIONS (1)
  - CORONARY ARTERY STENOSIS [None]
